FAERS Safety Report 8869591 (Version 1)
Quarter: 2012Q4

REPORT INFORMATION
  Report Type: 
  Country: US (occurrence: US)
  Receive Date: 20121028
  Receipt Date: 20121028
  Transmission Date: 20130627
  Serious: Yes (Other)
  Sender: FDA-Public Use
  Company Number: US-JNJFOC-20121010031

PATIENT
  Age: 41 Year
  Sex: Female
  Weight: 63.96 kg

DRUGS (3)
  1. REMICADE [Suspect]
     Indication: CROHN^S DISEASE
     Route: 042
     Dates: end: 20120915
  2. REMICADE [Suspect]
     Indication: CROHN^S DISEASE
     Route: 042
     Dates: start: 2010
  3. BENTYL [Concomitant]
     Route: 065

REACTIONS (2)
  - Lupus-like syndrome [Not Recovered/Not Resolved]
  - Dyspnoea [Unknown]
